FAERS Safety Report 7936210-6 (Version None)
Quarter: 2011Q4

REPORT INFORMATION
  Report Type: 
  Country: None (occurrence: None)
  Receive Date: 20111121
  Receipt Date: 20111110
  Transmission Date: 20120403
  Serious: Yes (Death)
  Sender: FDA-Public Use
  Company Number: MPS1-1000579

PATIENT

DRUGS (1)
  1. ALDURAZYME [Suspect]
     Indication: MUCOPOLYSACCHARIDOSIS I
     Dosage: 8.7 MG, QW, INTRAVENOUS
     Route: 042
     Dates: start: 20091001, end: 20110101

REACTIONS (1)
  - CARDIO-RESPIRATORY ARREST [None]
